FAERS Safety Report 6815245-0 (Version None)
Quarter: 2010Q2

REPORT INFORMATION
  Report Type: 
  Country: None (occurrence: None)
  Receive Date: 20100629
  Receipt Date: 20100618
  Transmission Date: 20101027
  Serious: Yes (Hospitalization)
  Sender: FDA-Public Use
  Company Number: 2008-01049

PATIENT
  Age: 63 Year
  Sex: Female
  Weight: 42 kg

DRUGS (19)
  1. VELCADE [Suspect]
     Indication: MULTIPLE MYELOMA
     Dosage: 1.7 MG, INTRAVENOUS
     Route: 042
     Dates: start: 20070320, end: 20070413
  2. DECADRON [Suspect]
     Indication: MULTIPLE MYELOMA
     Dosage: 20 MG, ORAL; 10 MG, ORAL
     Route: 048
     Dates: start: 20070320, end: 20070331
  3. DECADRON [Suspect]
     Indication: MULTIPLE MYELOMA
     Dosage: 20 MG, ORAL; 10 MG, ORAL
     Route: 048
     Dates: start: 20070410, end: 20070414
  4. DEXAMETHASONE [Suspect]
     Indication: MULTIPLE MYELOMA
     Dosage: 10 MG, ORAL
     Route: 048
     Dates: start: 20070410, end: 20070414
  5. DICLOFENAC SODIUM [Suspect]
     Indication: RHEUMATOID ARTHRITIS
     Dosage: 75 MG, ORAL
     Route: 048
     Dates: end: 20070419
  6. PREDNISOLONE [Concomitant]
  7. ALLOPURINOL [Concomitant]
  8. MUCOSTA (REBAMIPIDE) [Concomitant]
  9. ALENDRONATE SODIUM [Concomitant]
  10. GLYSENNID [Concomitant]
  11. OMEPRAZOLE [Concomitant]
  12. CYTOTEC [Concomitant]
  13. LENDORM [Concomitant]
  14. LEPETAN (BUPRENORPHINE HYDROCHLORIDE) [Concomitant]
  15. LECICARBON (SODIUM BICARBONATE, LECITHIN, SODIUM PHOSPHATE MONOBASIC ( [Concomitant]
  16. MAGNESIUM OXIDE (MAGNESIUM OXIDE) [Concomitant]
  17. COTRIM [Concomitant]
  18. LAXOBERON (SODIUM PICOSULFATE) [Concomitant]
  19. ITRACONAZOLE [Concomitant]

REACTIONS (25)
  - ABDOMINAL DISTENSION [None]
  - ALANINE AMINOTRANSFERASE INCREASED [None]
  - ANAEMIA [None]
  - BACK PAIN [None]
  - BACTERIAL INFECTION [None]
  - BLOOD ALBUMIN DECREASED [None]
  - BLOOD CALCIUM DECREASED [None]
  - BLOOD LACTATE DEHYDROGENASE INCREASED [None]
  - BLOOD POTASSIUM INCREASED [None]
  - BLOOD SODIUM DECREASED [None]
  - BLOOD UREA INCREASED [None]
  - BONE MARROW FAILURE [None]
  - CONSTIPATION [None]
  - HERPES ZOSTER [None]
  - HYPOAESTHESIA [None]
  - LARGE INTESTINAL ULCER HAEMORRHAGE [None]
  - LYMPHOCYTE COUNT DECREASED [None]
  - MULTIPLE MYELOMA [None]
  - OSTEOLYSIS [None]
  - PLATELET COUNT DECREASED [None]
  - PROTEIN TOTAL DECREASED [None]
  - PYREXIA [None]
  - SPINAL COMPRESSION FRACTURE [None]
  - SPINAL OSTEOARTHRITIS [None]
  - WHITE BLOOD CELL COUNT DECREASED [None]
